FAERS Safety Report 17472739 (Version 1)
Quarter: 2020Q1

REPORT INFORMATION
  Report Type: Spontaneous
  Country: US (occurrence: US)
  Receive Date: 20200228
  Receipt Date: 20200228
  Transmission Date: 20200409
  Serious: Yes (Life-Threatening, Other)
  Sender: FDA-Public Use
  Company Number: None

PATIENT
  Age: 35 Year
  Sex: Female
  Weight: 64 kg

DRUGS (2)
  1. ALTEPLASE. [Suspect]
     Active Substance: ALTEPLASE
     Indication: CEREBROVASCULAR ACCIDENT
     Dates: start: 20200227, end: 20200227
  2. NICARDIPINE 40MG/200ML [Concomitant]
     Dates: start: 20200227, end: 20200227

REACTIONS (3)
  - Muscle tightness [None]
  - Tongue paralysis [None]
  - Hypersensitivity [None]

NARRATIVE: CASE EVENT DATE: 20200227
